FAERS Safety Report 8893978 (Version 1)
Quarter: 2012Q4

REPORT INFORMATION
  Report Type: 
  Country: CA (occurrence: CA)
  Receive Date: 20121107
  Receipt Date: 20121107
  Transmission Date: 20130627
  Serious: Yes (Other)
  Sender: FDA-Public Use
  Company Number: PHMT2005CA00710

PATIENT
  Sex: Female

DRUGS (8)
  1. SANDOSTATIN LAR [Suspect]
     Indication: CARCINOID SYNDROME
     Dosage: 20 mg, every 4 weeks
     Route: 030
     Dates: start: 20050727
  2. SANDOSTATIN LAR [Suspect]
     Dosage: 10 mg, every 4 weeks
  3. SANDOSTATIN LAR [Suspect]
     Dosage: 20 mg, every 4 weeks
  4. METFORMIN [Suspect]
     Indication: HYPERGLYCAEMIA
  5. ALTACE [Concomitant]
  6. APO-FUROSEMIDE [Concomitant]
  7. ATORVASTATIN CALCIUM [Concomitant]
  8. HYDROCHLOROTHIAZIDE [Concomitant]

REACTIONS (9)
  - Dural tear [Unknown]
  - Blood pressure increased [Unknown]
  - Musculoskeletal stiffness [Unknown]
  - Muscular weakness [Unknown]
  - Neck pain [Unknown]
  - Hot flush [Unknown]
  - Blood glucose increased [Unknown]
  - Fatigue [Unknown]
  - Headache [Recovering/Resolving]
